FAERS Safety Report 6638821-7 (Version None)
Quarter: 2010Q1

REPORT INFORMATION
  Report Type: 
  Country: None (occurrence: None)
  Receive Date: 20100317
  Receipt Date: 20100310
  Transmission Date: 20100710
  Serious: Yes (Death, Other)
  Sender: FDA-Public Use
  Company Number: JP-PFIZER INC-2010019140

PATIENT
  Age: 70 Year
  Sex: Female
  Weight: 49.7 kg

DRUGS (34)
  1. SILDENAFIL CITRATE [Suspect]
     Indication: PULMONARY ARTERIAL HYPERTENSION
     Dosage: 20 MG, 3X/DAY
     Route: 048
     Dates: start: 20091124
  2. PROCYLIN [Concomitant]
     Indication: PULMONARY HYPERTENSION
     Dosage: UNK
     Route: 048
  3. ONON [Concomitant]
     Indication: ASTHMA
     Route: 048
  4. GRAMALIL [Concomitant]
     Indication: INSOMNIA
     Route: 048
  5. RENIVACE [Concomitant]
     Indication: CARDIAC FAILURE
     Route: 048
  6. LANSOPRAZOLE [Concomitant]
     Indication: GASTRIC ULCER
     Route: 048
  7. LASIX [Concomitant]
     Indication: CARDIAC FAILURE
     Route: 048
  8. CORTRIL [Concomitant]
     Indication: SJOGREN'S SYNDROME
     Route: 048
  9. PREDNISOLONE [Concomitant]
     Indication: SJOGREN'S SYNDROME
     Route: 048
  10. PREDNISOLONE [Concomitant]
     Route: 042
  11. ALDACTONE [Concomitant]
     Indication: CARDIAC FAILURE
     Route: 048
  12. LOXONIN [Concomitant]
     Route: 048
  13. CRAVIT [Concomitant]
     Route: 048
  14. ISODINE [Concomitant]
     Route: 048
  15. KENALOG [Concomitant]
     Indication: ORAL CANDIDIASIS
     Route: 048
  16. FUNGIZONE [Concomitant]
     Indication: ORAL CANDIDIASIS
     Route: 048
  17. GALENIC /FLUTICASONE/SALMETEROL/ [Concomitant]
     Indication: ASTHMA
     Route: 055
  18. WARFARIN POTASSIUM [Concomitant]
     Dosage: UNK
     Route: 048
     Dates: start: 20091205
  19. SPIRIVA [Concomitant]
     Indication: ASTHMA
     Route: 055
  20. TELEMINSOFT [Concomitant]
     Indication: CONSTIPATION
     Route: 054
  21. DEPAS [Concomitant]
     Indication: INSOMNIA
     Route: 048
  22. ALOSENN [Concomitant]
     Indication: CONSTIPATION
     Route: 048
  23. FORSENID [Concomitant]
     Indication: CONSTIPATION
     Route: 048
  24. LAXOBERON [Concomitant]
     Indication: CONSTIPATION
     Route: 048
  25. GLYCERIN [Concomitant]
     Indication: CONSTIPATION
     Route: 054
  26. HACHIAZULE [Concomitant]
     Indication: DRY MOUTH
     Route: 048
  27. HANP [Concomitant]
     Route: 042
  28. PRIDOL [Concomitant]
     Route: 042
  29. AMINO ACIDS NOS/CARBOHYDRATES NOS/ELECTROLYTES NOS [Concomitant]
     Route: 042
  30. PRIMPERAN INJ [Concomitant]
     Route: 042
  31. HEPARIN SODIUM [Concomitant]
     Route: 042
  32. XYLOCAINE [Concomitant]
     Route: 030
  33. SOLITA T [Concomitant]
     Route: 042
  34. SUBVITAN [Concomitant]
     Route: 042

REACTIONS (1)
  - PULMONARY HYPERTENSION [None]
